FAERS Safety Report 7683577-2 (Version None)
Quarter: 2011Q3

REPORT INFORMATION
  Report Type: 
  Country: None (occurrence: None)
  Receive Date: 20110815
  Receipt Date: 20110802
  Transmission Date: 20111222
  Serious: Yes (Other)
  Sender: FDA-Public Use
  Company Number: CA-JNJFOC-20110802716

PATIENT
  Age: 70 Year
  Sex: Female
  Weight: 99.79 kg

DRUGS (5)
  1. CELEBREX [Concomitant]
     Indication: PSORIATIC ARTHROPATHY
     Route: 048
  2. SIMPONI [Suspect]
     Indication: PSORIATIC ARTHROPATHY
     Route: 058
     Dates: start: 20110606
  3. KETOROLAC TROMETHAMINE [Concomitant]
     Indication: PSORIATIC ARTHROPATHY
     Route: 048
  4. METHOTREXATE [Concomitant]
     Indication: PSORIATIC ARTHROPATHY
     Route: 058
  5. NSAIDS [Concomitant]
     Indication: PSORIATIC ARTHROPATHY

REACTIONS (2)
  - SINUSITIS [None]
  - CLOSTRIDIAL INFECTION [None]
